FAERS Safety Report 12221692 (Version 1)
Quarter: 2016Q1

REPORT INFORMATION
  Report Type: Spontaneous
  Country: US (occurrence: None)
  Receive Date: 20160329
  Receipt Date: 20160329
  Transmission Date: 20160526
  Serious: Yes (Life-Threatening, Hospitalization, Disabling, Other)
  Sender: FDA-Public Use
  Company Number: None

PATIENT
  Age: 68 Year
  Sex: Female
  Weight: 45.81 kg

DRUGS (6)
  1. BAYER LOW DOSE [Concomitant]
     Active Substance: ASPIRIN
  2. LORAZEPAM. [Concomitant]
     Active Substance: LORAZEPAM
  3. PREPOPIK [Suspect]
     Active Substance: ANHYDROUS CITRIC ACID\MAGNESIUM OXIDE\SODIUM PICOSULFATE
     Indication: COLONOSCOPY
     Dosage: 2 PACKETS TWICE (AS PRESCRIBED) IN 1 DAY = 4 HRS APART DISSOLVED IN WATER AND THEN DRANK BY MOUTH
     Route: 048
     Dates: start: 20151001, end: 20151001
  4. ESTRODIOL [Concomitant]
  5. ESTRADIOL VAGINAL TABS [Concomitant]
  6. PREPOPIK [Suspect]
     Active Substance: ANHYDROUS CITRIC ACID\MAGNESIUM OXIDE\SODIUM PICOSULFATE
     Indication: BOWEL PREPARATION
     Dosage: 2 PACKETS TWICE (AS PRESCRIBED) IN 1 DAY = 4 HRS APART DISSOLVED IN WATER AND THEN DRANK BY MOUTH
     Route: 048
     Dates: start: 20151001, end: 20151001

REACTIONS (15)
  - Impaired driving ability [None]
  - Gastrointestinal disorder [None]
  - Arthralgia [None]
  - Dyspnoea [None]
  - Activities of daily living impaired [None]
  - Unresponsive to stimuli [None]
  - Seizure [None]
  - Blood potassium abnormal [None]
  - Insomnia [None]
  - Hyponatraemia [None]
  - Amnesia [None]
  - Economic problem [None]
  - Emotional disorder [None]
  - Arthropathy [None]
  - Disturbance in attention [None]

NARRATIVE: CASE EVENT DATE: 20151002
